FAERS Safety Report 9316739 (Version 1)
Quarter: 2013Q2

REPORT INFORMATION
  Report Type: Spontaneous
  Country: US (occurrence: None)
  Receive Date: 20130528
  Receipt Date: 20130528
  Transmission Date: 20140414
  Serious: Yes (Life-Threatening, Hospitalization, Disabling)
  Sender: FDA-Public Use
  Company Number: None

PATIENT
  Age: 39 Year
  Sex: Female
  Weight: 90.72 kg

DRUGS (1)
  1. SAFYRAL [Suspect]
     Indication: CONTRACEPTION
     Dosage: 1 PER DAY
     Route: 048

REACTIONS (6)
  - Pain [None]
  - Swelling [None]
  - Skin discolouration [None]
  - Deep vein thrombosis [None]
  - Pulmonary embolism [None]
  - Sensory loss [None]
